FAERS Safety Report 5950704-4 (Version None)
Quarter: 2008Q4

REPORT INFORMATION
  Report Type: 
  Country: None (occurrence: None)
  Receive Date: 20081112
  Receipt Date: 20081104
  Transmission Date: 20090506
  Serious: Yes (Hospitalization)
  Sender: FDA-Public Use
  Company Number: GB-ABBOTT-08P-167-0485540-00

PATIENT
  Age: 34 Year
  Sex: Male

DRUGS (13)
  1. CLARITHROMYCIN [Suspect]
     Indication: PSEUDOMONAS INFECTION
     Dosage: NOT REPORTED
  2. CLARITHROMYCIN [Suspect]
     Indication: MYCOBACTERIUM ABSCESSUS INFECTION
  3. OMEPRAZOLE [Suspect]
     Indication: GASTROOESOPHAGEAL REFLUX DISEASE
     Dosage: NOT REPORTED
  4. MINOCYCLINE HCL [Suspect]
     Indication: PSEUDOMONAS INFECTION
     Dosage: NOT REPORTED
  5. MINOCYCLINE HCL [Suspect]
     Indication: MYCOBACTERIUM ABSCESSUS INFECTION
  6. TOBRAMYCIN [Suspect]
     Indication: PSEUDOMONAS INFECTION
     Dosage: NOT REPORTED
  7. TOBRAMYCIN [Suspect]
     Indication: MYCOBACTERIUM ABSCESSUS INFECTION
  8. INTERFERON GAMMA [Suspect]
     Indication: PSEUDOMONAS INFECTION
     Dosage: NOT REPORTED
  9. INTERFERON GAMMA [Suspect]
     Indication: MYCOBACTERIUM ABSCESSUS INFECTION
  10. MEROPENEM [Suspect]
     Indication: PSEUDOMONAS INFECTION
     Dosage: NOT REPORTED
  11. MEROPENEM [Suspect]
     Indication: MYCOBACTERIUM ABSCESSUS INFECTION
  12. COLISTIN SULFATE [Suspect]
     Indication: PSEUDOMONAS INFECTION
     Dosage: NOT REPORTED
  13. COLISTIN SULFATE [Suspect]
     Indication: MYCOBACTERIUM ABSCESSUS INFECTION

REACTIONS (9)
  - ABDOMINAL PAIN [None]
  - COLITIS [None]
  - DEHYDRATION [None]
  - DIARRHOEA [None]
  - HYPOTENSION [None]
  - NAUSEA [None]
  - PSEUDOMEMBRANOUS COLITIS [None]
  - PYREXIA [None]
  - TACHYCARDIA [None]
